FAERS Safety Report 4499994-8 (Version None)
Quarter: 2004Q4

REPORT INFORMATION
  Report Type: 
  Country: None (occurrence: None)
  Receive Date: 20041112
  Receipt Date: 20041026
  Transmission Date: 20050328
  Serious: Yes (Life-Threatening, Hospitalization)
  Sender: FDA-Public Use
  Company Number: JP-MERCK-0410USA04414

PATIENT
  Age: 70 Year
  Sex: Female
  Weight: 43 kg

DRUGS (5)
  1. ZOCOR [Suspect]
     Indication: HYPERLIPIDAEMIA
     Route: 048
     Dates: start: 20030201, end: 20040901
  2. SYMMETREL [Concomitant]
     Route: 048
     Dates: start: 20030203, end: 20040901
  3. DOPASOL [Concomitant]
     Route: 048
     Dates: start: 20040423, end: 20040901
  4. PERMAX [Concomitant]
     Route: 048
     Dates: start: 20040723, end: 20040901
  5. VOLTAREN [Concomitant]
     Route: 054
     Dates: start: 20000916, end: 20040827

REACTIONS (2)
  - MALAISE [None]
  - PARKINSON'S DISEASE [None]
